FAERS Safety Report 18588816 (Version 1)
Quarter: 2020Q4

REPORT INFORMATION
  Report Type: Spontaneous
  Country: IT (occurrence: IT)
  Receive Date: 20201208
  Receipt Date: 20201208
  Transmission Date: 20210114
  Serious: Yes (Hospitalization)
  Sender: FDA-Public Use
  Company Number: IT-TEVA-2020-IT-1856114

PATIENT
  Age: 54 Year
  Sex: Male

DRUGS (2)
  1. GEMCITABINE. [Suspect]
     Active Substance: GEMCITABINE
     Indication: BLADDER TRANSITIONAL CELL CARCINOMA
     Dosage: 1000MG/MQ ON DAY1 AND 8 EVERY 21 DAYS FOR 4 CYCLES; HOWEVER, DID NOT RECEIVE ON DAY 8 OF THE FIRS...
     Route: 065
  2. CISPLATIN. [Suspect]
     Active Substance: CISPLATIN
     Indication: BLADDER TRANSITIONAL CELL CARCINOMA
     Dosage: 80MG/MQ ON DAY1 AND 8 EVERY 21 DAYS FOR 4 CYCLES
     Route: 065

REACTIONS (1)
  - Capillary leak syndrome [Recovered/Resolved]
